FAERS Safety Report 20719443 (Version 1)
Quarter: 2022Q2

REPORT INFORMATION
  Report Type: Spontaneous
  Country: US (occurrence: US)
  Receive Date: 20220418
  Receipt Date: 20220418
  Transmission Date: 20220721
  Serious: No
  Sender: FDA-Public Use
  Company Number: US-GLENMARK PHARMACEUTICALS-2022GMK070524

PATIENT

DRUGS (4)
  1. BRIELLYN [Suspect]
     Active Substance: ETHINYL ESTRADIOL\NORETHINDRONE
     Indication: Bone loss
     Dosage: UNK, OD
     Route: 048
     Dates: start: 20220201
  2. BRIELLYN [Suspect]
     Active Substance: ETHINYL ESTRADIOL\NORETHINDRONE
     Indication: Premature menopause
  3. BRIELLYN [Suspect]
     Active Substance: ETHINYL ESTRADIOL\NORETHINDRONE
     Indication: Bone disorder
  4. LEVOTHYROXINE [Concomitant]
     Active Substance: LEVOTHYROXINE
     Indication: Thyroid disorder
     Dosage: UNK, OD
     Route: 048
     Dates: start: 2006

REACTIONS (1)
  - Product use in unapproved indication [Unknown]
